FAERS Safety Report 18463228 (Version 1)
Quarter: 2020Q4

REPORT INFORMATION
  Report Type: Spontaneous
  Country: US (occurrence: US)
  Receive Date: 20201104
  Receipt Date: 20201104
  Transmission Date: 20210114
  Serious: Yes (Death)
  Sender: FDA-Public Use
  Company Number: NVSC2020US294300

PATIENT
  Age: 19 Year
  Sex: Female

DRUGS (1)
  1. ALPRAZOLAM. [Suspect]
     Active Substance: ALPRAZOLAM
     Indication: LOWER LIMB FRACTURE
     Dosage: UNK
     Route: 065

REACTIONS (6)
  - Drug dependence [Fatal]
  - Road traffic accident [Unknown]
  - Gun shot wound [Fatal]
  - Lower limb fracture [Unknown]
  - Product use in unapproved indication [Unknown]
  - Completed suicide [Fatal]

NARRATIVE: CASE EVENT DATE: 20170310
